FAERS Safety Report 7892669-4 (Version None)
Quarter: 2011Q4

REPORT INFORMATION
  Report Type: 
  Country: None (occurrence: None)
  Receive Date: 20111102
  Receipt Date: 20111018
  Transmission Date: 20120403
  Serious: Yes (Other)
  Sender: FDA-Public Use
  Company Number: 1000025039

PATIENT
  Age: 64 Year
  Sex: Female

DRUGS (2)
  1. CITALOPRAM HYDROBROMIDE [Suspect]
     Dosage: ORAL
     Route: 048
     Dates: start: 20050101
  2. LEXOMIL (BROMAZEPAM) [Concomitant]

REACTIONS (1)
  - NARROW ANTERIOR CHAMBER ANGLE [None]
